FAERS Safety Report 11836654 (Version 1)
Quarter: 2015Q4

REPORT INFORMATION
  Report Type: Spontaneous
  Country: US (occurrence: None)
  Receive Date: 20151214
  Receipt Date: 20151214
  Transmission Date: 20160305
  Serious: No
  Sender: FDA-Public Use
  Company Number: None

PATIENT
  Age: 51 Year
  Sex: Male

DRUGS (1)
  1. STIVARGA [Suspect]
     Active Substance: REGORAFENIB
     Indication: GENERAL SYMPTOM
     Dosage: 120 MG ?DAILY FOR 21 DAYS OF A 28?BY MOUTH
     Route: 048
     Dates: start: 20151026, end: 20151123

REACTIONS (1)
  - Blister [None]

NARRATIVE: CASE EVENT DATE: 20151123
